FAERS Safety Report 12142700 (Version 3)
Quarter: 2016Q4

REPORT INFORMATION
  Report Type: Spontaneous
  Country: BR (occurrence: BR)
  Receive Date: 20160303
  Receipt Date: 20161028
  Transmission Date: 20170207
  Serious: Yes (Other)
  Sender: FDA-Public Use
  Company Number: BR-ELI_LILLY_AND_COMPANY-BR201602008836

PATIENT
  Age: 72 Year
  Sex: Female
  Weight: 43 kg

DRUGS (1)
  1. FORTEO [Suspect]
     Active Substance: TERIPARATIDE
     Indication: PRODUCT USED FOR UNKNOWN INDICATION
     Dosage: UNK UNK, QD
     Route: 058
     Dates: start: 2015

REACTIONS (9)
  - Injection site bruising [Recovered/Resolved]
  - Cardiac disorder [Unknown]
  - Gastrointestinal infection [Recovered/Resolved]
  - Diarrhoea [Recovered/Resolved]
  - Injection site pain [Unknown]
  - Decreased appetite [Recovered/Resolved]
  - Incorrect product storage [Unknown]
  - Weight decreased [Recovered/Resolved]
  - Drug dose omission [Unknown]

NARRATIVE: CASE EVENT DATE: 201510
